FAERS Safety Report 6363029-2 (Version None)
Quarter: 2009Q3

REPORT INFORMATION
  Report Type: 
  Country: None (occurrence: None)
  Receive Date: 20090919
  Receipt Date: 20090616
  Transmission Date: 20100115
  Serious: No
  Sender: FDA-Public Use
  Company Number: US-ABBOTT-09P-163-0580229-00

PATIENT
  Sex: Female
  Weight: 65.83 kg

DRUGS (13)
  1. HUMIRA [Suspect]
     Indication: RHEUMATOID ARTHRITIS
     Route: 058
     Dates: start: 20090101
  2. HUMIRA [Suspect]
     Indication: COLITIS ULCERATIVE
  3. METHOTREXATE [Concomitant]
     Indication: RHEUMATOID ARTHRITIS
     Route: 050
  4. DARVOCETTE [Concomitant]
     Indication: PAIN
  5. ASOCOL [Concomitant]
     Indication: DRUG USE FOR UNKNOWN INDICATION
     Dosage: 400 MG FORM STRENGTH
     Route: 048
  6. BENTYL [Concomitant]
     Indication: COLITIS ULCERATIVE
  7. FOLIC ACID [Concomitant]
     Indication: MEDICAL DIET
     Route: 048
  8. ESTRADIOL [Concomitant]
     Indication: HORMONE REPLACEMENT THERAPY
     Route: 048
  9. TOPAMAX [Concomitant]
     Indication: HEADACHE
     Route: 048
  10. TOPAMAX [Concomitant]
     Indication: INTRACRANIAL PRESSURE INCREASED
  11. AMEREX (?) [Concomitant]
     Indication: HEADACHE
     Route: 048
  12. AMEREX (?) [Concomitant]
     Indication: INTRACRANIAL PRESSURE INCREASED
  13. LOVENOX [Concomitant]
     Indication: MEDICAL DIET
     Route: 048

REACTIONS (1)
  - ALOPECIA [None]
